FAERS Safety Report 23048430 (Version 3)
Quarter: 2023Q4

REPORT INFORMATION
  Report Type: Spontaneous
  Country: JP (occurrence: JP)
  Receive Date: 20231010
  Receipt Date: 20231229
  Transmission Date: 20240110
  Serious: Yes (Hospitalization, Other)
  Sender: FDA-Public Use
  Company Number: JP-SA-2023SA302193

PATIENT
  Age: 71 Year
  Sex: Female
  Weight: 48 kg

DRUGS (9)
  1. DUPIXENT [Suspect]
     Active Substance: DUPILUMAB
     Indication: Chronic rhinosinusitis with nasal polyps
     Dosage: 300 MG, 1X
     Route: 058
     Dates: start: 20230907, end: 20230921
  2. PREDONINE [Concomitant]
     Active Substance: PREDNISOLONE
     Indication: Chronic rhinosinusitis with nasal polyps
     Dosage: PRIOR TREATMENT (2 MG EVERY OTHER DAY TO APPROXIMATELY 30 MG)
     Route: 048
     Dates: end: 20230810
  3. PREDONINE [Concomitant]
     Active Substance: PREDNISOLONE
     Indication: Eosinophilic granulomatosis with polyangiitis
     Dosage: 50 MG
     Route: 048
     Dates: start: 20230921, end: 202309
  4. PREDONINE [Concomitant]
     Active Substance: PREDNISOLONE
     Dosage: 30 MG
     Route: 048
     Dates: start: 202309, end: 202309
  5. PREDONINE [Concomitant]
     Active Substance: PREDNISOLONE
     Dosage: 10 MG
     Route: 048
     Dates: start: 20231128
  6. PRANLUKAST [Concomitant]
     Active Substance: PRANLUKAST
     Indication: Rhinitis allergic
     Dosage: 112.5 MG, QID
     Route: 048
     Dates: start: 20210624
  7. SUPLATAST TOSILATE [Concomitant]
     Active Substance: SUPLATAST TOSILATE
     Indication: Rhinitis allergic
     Dosage: 100 MG, TID
     Route: 048
     Dates: start: 20160314
  8. BETAMETHASONE SODIUM PHOSPHATE [Concomitant]
     Active Substance: BETAMETHASONE SODIUM PHOSPHATE
     Indication: Rhinitis allergic
     Dosage: 1 DROP, QD
     Route: 001
     Dates: start: 20160314
  9. NASONEX [Concomitant]
     Active Substance: MOMETASONE FUROATE
     Indication: Rhinitis allergic
     Dosage: 50 UG, QD
     Route: 045
     Dates: start: 20161031

REACTIONS (17)
  - Eosinophilic granulomatosis with polyangiitis [Recovering/Resolving]
  - Arthralgia [Recovered/Resolved]
  - Asthma [Recovering/Resolving]
  - Lung disorder [Recovering/Resolving]
  - Rash [Recovered/Resolved]
  - Peroneal nerve palsy [Recovered/Resolved]
  - Dyspnoea [Recovering/Resolving]
  - Decreased appetite [Recovering/Resolving]
  - Vomiting [Recovering/Resolving]
  - Diarrhoea [Recovering/Resolving]
  - Purpura [Recovering/Resolving]
  - Pyrexia [Recovering/Resolving]
  - Weight decreased [Recovering/Resolving]
  - Cough [Recovering/Resolving]
  - Erythema [Recovering/Resolving]
  - Malaise [Recovering/Resolving]
  - Headache [Recovering/Resolving]

NARRATIVE: CASE EVENT DATE: 20230901
